FAERS Safety Report 11284469 (Version 2)
Quarter: 2015Q3

REPORT INFORMATION
  Report Type: Spontaneous
  Country: US (occurrence: US)
  Receive Date: 20150720
  Receipt Date: 20150724
  Transmission Date: 20151125
  Serious: Yes (Other)
  Sender: FDA-Public Use
  Company Number: US-PFIZER INC-2015226292

PATIENT
  Age: 76 Year
  Sex: Male

DRUGS (1)
  1. CHAPSTICK LIP BALM [Suspect]
     Active Substance: ISOPROPYL MYRISTATE
     Dosage: UNK, AS NEEDED
     Dates: start: 1975

REACTIONS (1)
  - Coeliac disease [Unknown]
